FAERS Safety Report 9550746 (Version 1)
Quarter: 2013Q3

REPORT INFORMATION
  Report Type: Spontaneous
  Country: US (occurrence: US)
  Receive Date: 20130924
  Receipt Date: 20130924
  Transmission Date: 20140515
  Serious: No
  Sender: FDA-Public Use
  Company Number: US-SANOFI-AVENTIS-2013SA023045

PATIENT
  Age: 50 Year
  Sex: Male
  Weight: 70 kg

DRUGS (11)
  1. AUBAGIO [Suspect]
     Indication: MULTIPLE SCLEROSIS
     Route: 048
     Dates: start: 20130213, end: 20130326
  2. AUBAGIO [Suspect]
     Indication: MULTIPLE SCLEROSIS
     Route: 048
  3. AUBAGIO [Suspect]
     Indication: MULTIPLE SCLEROSIS
     Route: 048
  4. GABAPENTIN [Concomitant]
     Indication: MULTIPLE SCLEROSIS
  5. DONEPEZIL [Concomitant]
  6. LOSARTAN [Concomitant]
  7. CHLORZOXAZONE [Concomitant]
     Indication: MUSCLE RELAXANT THERAPY
  8. OXYCODONE [Concomitant]
  9. CENTRUM SILVER [Concomitant]
  10. HYZAAR [Concomitant]
  11. ZYRTEC-D /USA/ [Concomitant]

REACTIONS (9)
  - Ocular hyperaemia [Not Recovered/Not Resolved]
  - Drug hypersensitivity [Unknown]
  - Eye swelling [Unknown]
  - Pruritus [Recovering/Resolving]
  - Back pain [Not Recovered/Not Resolved]
  - Pain in extremity [Not Recovered/Not Resolved]
  - Sinus disorder [Unknown]
  - Pain [Unknown]
  - Diarrhoea [Unknown]
